FAERS Safety Report 26210641 (Version 1)
Quarter: 2025Q4

REPORT INFORMATION
  Report Type: Spontaneous
  Country: GB (occurrence: GB)
  Receive Date: 20251230
  Receipt Date: 20251230
  Transmission Date: 20260118
  Serious: Yes (Life-Threatening, Other)
  Sender: AUROBINDO
  Company Number: GB-MHRA-MED-202512171530323210-ZMVLN

PATIENT
  Age: 38 Year
  Sex: Female

DRUGS (8)
  1. MIRTAZAPINE [Suspect]
     Active Substance: MIRTAZAPINE
     Indication: Obsessive-compulsive disorder
     Dosage: 45 MILLIGRAM, ONCE A DAY
     Route: 065
  2. MIRTAZAPINE [Suspect]
     Active Substance: MIRTAZAPINE
     Indication: Post-traumatic stress disorder
  3. Omega 3-6-9 supplement [Concomitant]
     Indication: Aphasia
     Route: 065
  4. Omega 3-6-9 supplement [Concomitant]
     Indication: Brain fog
  5. Pregnacare breastfeeding vitamins with Omega 3 [Concomitant]
     Indication: Breast feeding
     Route: 065
  6. Ferrous Fumarate 420mg/day [Concomitant]
     Indication: Iron deficiency
     Route: 065
  7. Ferrous Fumarate 420mg/day [Concomitant]
     Indication: Alopecia
  8. FULTIUM-D3 800IU [Concomitant]
     Indication: Vitamin D decreased
     Route: 065

REACTIONS (6)
  - Cholecystitis [Unknown]
  - Pancreatitis necrotising [Unknown]
  - Weight decreased [Unknown]
  - Pancreatitis acute [Recovering/Resolving]
  - Malnutrition [Unknown]
  - Maternal exposure during breast feeding [Unknown]

NARRATIVE: CASE EVENT DATE: 20250316
